FAERS Safety Report 6241656-0 (Version None)
Quarter: 2009Q2

REPORT INFORMATION
  Report Type: 
  Country: None (occurrence: None)
  Receive Date: 20090623
  Receipt Date: 20061128
  Transmission Date: 20091009
  Serious: Yes (Hospitalization)
  Sender: FDA-Public Use
  Company Number: TR-ROCHE-472737

PATIENT
  Age: 26 Year
  Sex: Male

DRUGS (1)
  1. INTERFERON ALFA [Suspect]
     Route: 058
     Dates: start: 20000601, end: 20001101

REACTIONS (3)
  - EXTRAPYRAMIDAL DISORDER [None]
  - INFLUENZA LIKE ILLNESS [None]
  - PSYCHOTIC DISORDER [None]
